FAERS Safety Report 4449739-2 (Version None)
Quarter: 2004Q3

REPORT INFORMATION
  Report Type: 
  Country: None (occurrence: None)
  Receive Date: 20040913
  Receipt Date: 20040903
  Transmission Date: 20050211
  Serious: Yes (Death, Life-Threatening)
  Sender: FDA-Public Use
  Company Number: 2004AP02939

PATIENT
  Age: 51 Year
  Sex: Male

DRUGS (15)
  1. IRESSA [Suspect]
     Indication: LUNG ADENOCARCINOMA
     Dosage: 250 MG DAILY PO
     Route: 048
     Dates: start: 20040524, end: 20040530
  2. IRESSA [Suspect]
     Indication: NON-SMALL CELL LUNG CANCER
     Dosage: 250 MG DAILY PO
     Route: 048
     Dates: start: 20040524, end: 20040530
  3. LOXONIN [Concomitant]
  4. APLACE [Concomitant]
  5. CRAVIT [Concomitant]
  6. NAUZELIN [Concomitant]
  7. MUCOSTA [Concomitant]
  8. FLOMOX [Concomitant]
  9. PRIMPERAN INJ [Concomitant]
  10. SULPERAZON [Concomitant]
  11. CARBOPLATIN [Concomitant]
  12. VINORELBINE TARTRATE [Concomitant]
  13. PACLITAXEL [Concomitant]
  14. DOCETAXEL [Concomitant]
  15. RADIATION THERAPY [Concomitant]

REACTIONS (5)
  - CARDIO-RESPIRATORY ARREST [None]
  - DYSPNOEA EXERTIONAL [None]
  - INTERSTITIAL LUNG DISEASE [None]
  - OXYGEN SATURATION DECREASED [None]
  - SUDDEN DEATH [None]
